FAERS Safety Report 4512533-8 (Version None)
Quarter: 2004Q4

REPORT INFORMATION
  Report Type: 
  Country: None (occurrence: None)
  Receive Date: 20041008
  Receipt Date: 20040827
  Transmission Date: 20050328
  Serious: Yes (Other)
  Sender: FDA-Public Use
  Company Number: 342852

PATIENT
  Age: 41 Year
  Sex: Male

DRUGS (3)
  1. FUZEON [Suspect]
     Indication: HIV INFECTION
     Dosage: 90 MG/ML 2 PER DAY SUBCUTANEOUS
     Route: 058
     Dates: start: 20030712
  2. ALCOHOLIC BEVERAGE (ALCOHOL) [Concomitant]
  3. PROPHYLATIC MEDICATION NOS (PROPHYLACTIC MEDICATION NOS) [Concomitant]

REACTIONS (6)
  - INJECTION SITE PAIN [None]
  - INJECTION SITE REACTION [None]
  - INJECTION SITE SWELLING [None]
  - INSOMNIA [None]
  - MEDICATION ERROR [None]
  - NO ADVERSE EFFECT [None]
